FAERS Safety Report 6394366-3 (Version None)
Quarter: 2009Q4

REPORT INFORMATION
  Report Type: 
  Country: None (occurrence: None)
  Receive Date: 20091006
  Receipt Date: 20090919
  Transmission Date: 20100525
  Serious: Yes (Other)
  Sender: FDA-Public Use
  Company Number: 1-20064261

PATIENT
  Sex: Male

DRUGS (2)
  1. CYPROHEPTADINE HCL [Suspect]
     Indication: INCREASED APPETITE
     Dosage: 4 MG DAILY, ORAL
     Route: 048
  2. METHANDIENONE (MANUFACTURER NOT REPORTED) [Suspect]
     Indication: INCREASED APPETITE
     Dosage: 5 MG DAILY, ORAL
     Route: 048

REACTIONS (6)
  - ADRENAL INSUFFICIENCY [None]
  - ADRENAL SUPPRESSION [None]
  - ADRENOGENITAL SYNDROME [None]
  - DYSPHONIA [None]
  - PSYCHOMOTOR HYPERACTIVITY [None]
  - VIRILISM [None]
